FAERS Safety Report 24382700 (Version 1)
Quarter: 2024Q4

REPORT INFORMATION
  Report Type: Spontaneous
  Country: CN (occurrence: CN)
  Receive Date: 20241001
  Receipt Date: 20241001
  Transmission Date: 20250114
  Serious: Yes (Death, Hospitalization, Other)
  Sender: RANBAXY
  Company Number: CN-SUN PHARMACEUTICAL INDUSTRIES LTD-2024R1-470584

PATIENT
  Age: 65 Year
  Sex: Male

DRUGS (5)
  1. GANCICLOVIR [Suspect]
     Active Substance: GANCICLOVIR
     Indication: Antiviral treatment
     Dosage: 0.5 GRAM, BID
     Route: 042
  2. MINOCYCLINE [Suspect]
     Active Substance: MINOCYCLINE HYDROCHLORIDE
     Indication: Electrocardiogram QT prolonged
     Dosage: 100 MILLIGRAM, BID
  3. MYCOPHENOLATE SODIUM [Suspect]
     Active Substance: MYCOPHENOLATE SODIUM
     Indication: Infection
     Dosage: 750 MILLIGRAM, BID
  4. ORNITHINE ASPARTATE [Suspect]
     Active Substance: ORNITHINE ASPARTATE
     Indication: Liver disorder
     Dosage: UNK
     Route: 065
  5. GLUTATHIONE [Suspect]
     Active Substance: GLUTATHIONE
     Indication: Liver disorder
     Dosage: UNK
     Route: 065

REACTIONS (3)
  - Brain death [Fatal]
  - Hypercapnia [Fatal]
  - Haemodynamic instability [Fatal]
